FAERS Safety Report 16668883 (Version 11)
Quarter: 2024Q2

REPORT INFORMATION
  Report Type: Report from Study
  Country: CA (occurrence: CA)
  Receive Date: 20190805
  Receipt Date: 20240625
  Transmission Date: 20240715
  Serious: Yes (Hospitalization, Other)
  Sender: FDA-Public Use
  Company Number: CA-KOREA IPSEN PHARMA-2019-13516

PATIENT
  Age: 56 Year
  Sex: Female

DRUGS (9)
  1. LANREOTIDE ACETATE [Suspect]
     Active Substance: LANREOTIDE ACETATE
     Indication: Gastroenteropancreatic neuroendocrine tumour disease
     Route: 058
     Dates: start: 20190723
  2. VITAMIN D NOS [Concomitant]
     Active Substance: CHOLECALCIFEROL\ERGOCALCIFEROL
  3. CALCIUM [Concomitant]
     Active Substance: CALCIUM
  4. IRON [Concomitant]
     Active Substance: IRON
  5. IRON [Concomitant]
     Active Substance: IRON
  6. REACTINE [Concomitant]
  7. CLOBETASOL [Concomitant]
     Active Substance: CLOBETASOL
  8. TYLENOL [Concomitant]
     Active Substance: ACETAMINOPHEN
  9. CYANOCOBALAMIN [Concomitant]
     Active Substance: CYANOCOBALAMIN

REACTIONS (10)
  - Blood pressure increased [Recovered/Resolved]
  - Headache [Recovered/Resolved]
  - Ear pain [Recovered/Resolved]
  - Heart rate increased [Recovered/Resolved]
  - Meningioma [Recovered/Resolved]
  - Diarrhoea [Recovered/Resolved]
  - Nasopharyngitis [Recovering/Resolving]
  - Blood iron increased [Unknown]
  - Ear pain [Recovered/Resolved]
  - Middle ear effusion [Recovering/Resolving]

NARRATIVE: CASE EVENT DATE: 20190723
